FAERS Safety Report 12839246 (Version 3)
Quarter: 2017Q1

REPORT INFORMATION
  Report Type: Spontaneous
  Country: US (occurrence: US)
  Receive Date: 20161012
  Receipt Date: 20170202
  Transmission Date: 20170428
  Serious: No
  Sender: FDA-Public Use
  Company Number: US-PFIZER INC-2016471100

PATIENT
  Age: 62 Year
  Sex: Female
  Weight: 73 kg

DRUGS (1)
  1. SULFASALAZINE. [Suspect]
     Active Substance: SULFASALAZINE
     Indication: RHEUMATOID ARTHRITIS
     Dosage: 500 MG, DAILY
     Route: 048
     Dates: start: 20160915, end: 20161006

REACTIONS (4)
  - Oropharyngeal pain [Recovered/Resolved]
  - Dizziness [Recovered/Resolved]
  - Alopecia [Recovered/Resolved]
  - Blister infected [Recovered/Resolved]

NARRATIVE: CASE EVENT DATE: 20161001
